FAERS Safety Report 10072019 (Version 2)
Quarter: 2014Q4

REPORT INFORMATION
  Report Type: Spontaneous
  Country: SE (occurrence: None)
  Receive Date: 20140409
  Receipt Date: 20141027
  Transmission Date: 20150528
  Serious: Yes (Disabling)
  Sender: FDA-Public Use
  Company Number: SE-SEPTODONT-201401843

PATIENT
  Age: 48 Year
  Sex: Female

DRUGS (1)
  1. SEPTOCAINE AND EPINEPHRINE [Suspect]
     Active Substance: ARTICAINE HYDROCHLORIDE\EPINEPHRINE BITARTRATE
     Indication: LOCAL ANAESTHESIA
     Route: 004
     Dates: start: 20130610, end: 20130610

REACTIONS (9)
  - Myalgia [None]
  - Headache [None]
  - Dental discomfort [None]
  - Muscle spasms [None]
  - Neuralgia [None]
  - Influenza like illness [None]
  - Nausea [None]
  - Musculoskeletal stiffness [None]
  - Tremor [None]
